FAERS Safety Report 11059750 (Version 1)
Quarter: 2015Q2

REPORT INFORMATION
  Report Type: Spontaneous
  Country: US (occurrence: US)
  Receive Date: 20150423
  Receipt Date: 20150423
  Transmission Date: 20150821
  Serious: Yes (Hospitalization, Other)
  Sender: FDA-Public Use
  Company Number: 2015SP001036

PATIENT
  Age: 21 Year
  Sex: Female

DRUGS (2)
  1. RISPERDAL [Concomitant]
     Active Substance: RISPERIDONE
     Dates: start: 201401, end: 201408
  2. LATUDA [Suspect]
     Active Substance: LURASIDONE HYDROCHLORIDE
     Route: 048
     Dates: start: 201408, end: 201410

REACTIONS (5)
  - Musculoskeletal stiffness [Not Recovered/Not Resolved]
  - Akathisia [Not Recovered/Not Resolved]
  - Insomnia [Not Recovered/Not Resolved]
  - Dyskinesia [Unknown]
  - Suicidal ideation [Not Recovered/Not Resolved]

NARRATIVE: CASE EVENT DATE: 2014
